FAERS Safety Report 7282281-2 (Version None)
Quarter: 2011Q1

REPORT INFORMATION
  Report Type: 
  Country: None (occurrence: None)
  Receive Date: 20110209
  Receipt Date: 20110128
  Transmission Date: 20110831
  Serious: Yes (Other)
  Sender: FDA-Public Use
  Company Number: NL-TEVA-265918ISR

PATIENT
  Sex: Male

DRUGS (2)
  1. CISPLATIN [Suspect]
     Dates: start: 20100810, end: 20100831
  2. PEMETREXED [Concomitant]
     Dates: start: 20100810, end: 20100831

REACTIONS (1)
  - ARTERIAL OCCLUSIVE DISEASE [None]
